FAERS Safety Report 7482842-1 (Version None)
Quarter: 2011Q2

REPORT INFORMATION
  Report Type: 
  Country: None (occurrence: None)
  Receive Date: 20110516
  Receipt Date: 20110414
  Transmission Date: 20111010
  Serious: Yes (Hospitalization)
  Sender: FDA-Public Use
  Company Number: PHHY2011BR32750

PATIENT
  Sex: Male

DRUGS (9)
  1. MYFORTIC [Concomitant]
     Dosage: 360 MG, UNK
  2. CARVEDILOL [Concomitant]
     Dosage: 6.25 MG, UNK
  3. OMEPRAZOLE [Suspect]
     Dosage: 40 MG, UNK
     Route: 048
  4. MELPHALAN HYDROCHLORIDE [Concomitant]
     Dosage: 10 MG, UNK
  5. METFORMIN HCL [Concomitant]
     Dosage: 500 MG, UNK
  6. INSULIN [Concomitant]
     Dosage: UNK UKN, UNK
  7. FUROSEMIDE [Concomitant]
     Dosage: 40 MG, UNK
  8. HYDROCHLOROTHIAZIDE [Concomitant]
     Dosage: 50 MG, UNK
  9. DIGOXIN [Concomitant]
     Dosage: 0.25 MG, UNK

REACTIONS (2)
  - DIABETES MELLITUS [None]
  - RENAL DISORDER [None]
